FAERS Safety Report 4421792-1 (Version None)
Quarter: 2004Q3

REPORT INFORMATION
  Report Type: 
  Country: None (occurrence: None)
  Receive Date: 20040806
  Receipt Date: 20040715
  Transmission Date: 20050211
  Serious: Yes (Other)
  Sender: FDA-Public Use
  Company Number: USA020312245

PATIENT
  Sex: Female

DRUGS (6)
  1. HUMATROPE [Suspect]
     Indication: GROWTH HORMONE DEFICIENCY
     Dosage: 0.4 MG/DAY
     Dates: start: 20000401
  2. CORTEF (HYDROCORTISONE ACEATE) [Concomitant]
  3. PROMETRIUM [Concomitant]
  4. SYNTHROID [Concomitant]
  5. HUMABID (GUAIFENESIN) [Concomitant]
  6. ESTROSTEP [Concomitant]

REACTIONS (4)
  - INJECTION SITE EXTRAVASATION [None]
  - INJECTION SITE HAEMORRHAGE [None]
  - NEOPLASM RECURRENCE [None]
  - PHARMACEUTICAL PRODUCT COMPLAINT [None]
